FAERS Safety Report 6253861-8 (Version None)
Quarter: 2009Q2

REPORT INFORMATION
  Report Type: 
  Country: None (occurrence: None)
  Receive Date: 20090630
  Receipt Date: 20090630
  Transmission Date: 20091009
  Serious: No
  Sender: FDA-Public Use
  Company Number: None

PATIENT
  Age: 39 Year
  Sex: Female
  Weight: 49.4421 kg

DRUGS (1)
  1. ZYRTEC [Suspect]
     Indication: SEASONAL ALLERGY
     Dosage: 10 MG QD PO
     Route: 048
     Dates: start: 20090420, end: 20090626

REACTIONS (10)
  - ERYTHEMA OF EYELID [None]
  - EYELID OEDEMA [None]
  - HEADACHE [None]
  - NASAL CONGESTION [None]
  - NASAL DISORDER [None]
  - PRURITUS GENERALISED [None]
  - RHINITIS [None]
  - RHINORRHOEA [None]
  - SNEEZING [None]
  - SWELLING [None]
